FAERS Safety Report 4721770-9 (Version None)
Quarter: 2005Q3

REPORT INFORMATION
  Report Type: 
  Country: None (occurrence: None)
  Receive Date: 20050721
  Receipt Date: 20050411
  Transmission Date: 20060218
  Serious: Yes (Hospitalization)
  Sender: FDA-Public Use
  Company Number: US-BRISTOL-MYERS SQUIBB COMPANY-12928024

PATIENT

DRUGS (2)
  1. COUMADIN [Suspect]
  2. CIPRO [Suspect]
     Route: 048

REACTIONS (2)
  - DIARRHOEA [None]
  - HAEMORRHAGE [None]
